FAERS Safety Report 17477762 (Version 1)
Quarter: 2020Q1

REPORT INFORMATION
  Report Type: Report from Study
  Country: JP (occurrence: JP)
  Receive Date: 20200229
  Receipt Date: 20200229
  Transmission Date: 20200409
  Serious: Yes (Other)
  Sender: FDA-Public Use
  Company Number: JP-AMGEN-JPNCT2020033429

PATIENT
  Age: 5 Year
  Sex: Male

DRUGS (16)
  1. POLARAMINE [Concomitant]
     Active Substance: DEXCHLORPHENIRAMINE MALEATE
     Indication: PRODUCT USED FOR UNKNOWN INDICATION
     Dosage: UNK
     Route: 065
  2. UNITUXIN [Suspect]
     Active Substance: DINUTUXIMAB
     Indication: NEUROBLASTOMA
     Dosage: 17.5 MILLIGRAM/SQ. METER (10-20 HOUR DRIP INFUSION)
     Route: 041
     Dates: start: 20170313, end: 20170721
  3. ACETAMINOPHEN. [Concomitant]
     Active Substance: ACETAMINOPHEN
     Indication: SUPPORTIVE CARE
     Dosage: 10 MILLIGRAM/KILOGRAM (MAXIMUM AT 650 MG)
     Route: 065
  4. LOXOPROFEN [LOXOPROFEN SODIUM] [Concomitant]
     Active Substance: LOXOPROFEN SODIUM
     Indication: PRODUCT USED FOR UNKNOWN INDICATION
     Dosage: UNK
     Route: 048
  5. MEDICON [DEXTROMETHORPHAN HYDROBROMIDE;POTASSIUM CRESOLSULFONATE] [Concomitant]
     Indication: PRODUCT USED FOR UNKNOWN INDICATION
     Dosage: UNK
     Route: 048
  6. IMUNACE [Suspect]
     Active Substance: TECELEUKIN
     Dosage: UNK 1000000 U/M2 (2ND WEEK, 24-HOUR DRIP INFUSION)
     Route: 041
     Dates: end: 20170721
  7. ATARAX-P [HYDROXYZINE HYDROCHLORIDE] [Concomitant]
     Indication: SUPPORTIVE CARE
     Dosage: UNK (0.5-1 MG/KG (MAXIMUM AT 50MG))
     Route: 065
  8. LIDOCAINE. [Concomitant]
     Active Substance: LIDOCAINE
     Dosage: UNK (1 MG/KG/H)
     Route: 041
  9. LASIX [Concomitant]
     Active Substance: FUROSEMIDE
     Indication: PRODUCT USED FOR UNKNOWN INDICATION
     Dosage: UNK
     Route: 065
  10. EMLA [Concomitant]
     Active Substance: LIDOCAINE\PRILOCAINE
     Indication: PRODUCT USED FOR UNKNOWN INDICATION
     Dosage: UNK
     Route: 061
  11. BAKTAR [Concomitant]
     Active Substance: SULFAMETHOXAZOLE\TRIMETHOPRIM
     Indication: PRODUCT USED FOR UNKNOWN INDICATION
     Dosage: UNK
     Route: 048
  12. PLATELETS [Concomitant]
     Active Substance: HUMAN PLATELET, ALLOGENIC
     Indication: PRODUCT USED FOR UNKNOWN INDICATION
     Dosage: UNK
     Route: 065
  13. MORPHINE [Concomitant]
     Active Substance: MORPHINE
     Indication: PAIN PROPHYLAXIS
     Dosage: UNK
     Route: 065
  14. LIDOCAINE. [Concomitant]
     Active Substance: LIDOCAINE
     Indication: PAIN PROPHYLAXIS
     Dosage: 2 MILLIGRAM/KILOGRAM
     Route: 041
  15. FILGRASTIM [Suspect]
     Active Substance: FILGRASTIM
     Indication: PRODUCT USED FOR UNKNOWN INDICATION
     Dosage: 5 MICROGRAM/KILOGRAM
     Route: 058
     Dates: start: 20170630
  16. IMUNACE [Suspect]
     Active Substance: TECELEUKIN
     Indication: NEUROBLASTOMA
     Dosage: UNK 750000 U/M2 (1ST WEEK, 24-HOUR DRIP INFUSION)
     Route: 041
     Dates: start: 20170403

REACTIONS (54)
  - Hypoxia [Recovered/Resolved]
  - Eyelid oedema [Recovered/Resolved]
  - Alanine aminotransferase increased [Not Recovered/Not Resolved]
  - Gamma-glutamyltransferase increased [Not Recovered/Not Resolved]
  - Face oedema [Recovered/Resolved]
  - Pain in extremity [Recovered/Resolved]
  - Pyrexia [Recovered/Resolved]
  - Neutrophil count decreased [Recovered/Resolved]
  - Aspartate aminotransferase increased [Recovered/Resolved]
  - Aspartate aminotransferase increased [Recovered/Resolved]
  - Face oedema [Recovered/Resolved]
  - Hypophosphataemia [Recovered/Resolved]
  - Decreased appetite [Recovered/Resolved]
  - Haematocrit decreased [Not Recovered/Not Resolved]
  - Pyrexia [Recovered/Resolved]
  - Vomiting [Recovered/Resolved]
  - Pneumonitis [Recovered/Resolved]
  - Cough [Recovered/Resolved]
  - Pain in extremity [Recovered/Resolved]
  - Vomiting [Recovered/Resolved]
  - Blood urea increased [Recovered/Resolved]
  - Weight increased [Recovered/Resolved]
  - Weight increased [Recovered/Resolved]
  - Aspartate aminotransferase increased [Recovered/Resolved]
  - Pain in extremity [Recovered/Resolved]
  - Pyrexia [Recovered/Resolved]
  - Abdominal pain [Recovered/Resolved]
  - Aspartate aminotransferase increased [Recovered/Resolved]
  - Hypoalbuminaemia [Recovered/Resolved]
  - Hypoalbuminaemia [Recovered/Resolved]
  - Hypoalbuminaemia [Recovered/Resolved]
  - Anaemia [Not Recovered/Not Resolved]
  - Platelet count decreased [Recovered/Resolved]
  - Malaise [Recovered/Resolved]
  - Pyrexia [Recovered/Resolved]
  - Weight increased [Recovered/Resolved]
  - Face oedema [Recovered/Resolved]
  - Decreased appetite [Recovered/Resolved]
  - Constipation [Recovered/Resolved]
  - Nausea [Recovered/Resolved]
  - Platelet count decreased [Recovered/Resolved]
  - Headache [Recovered/Resolved]
  - Pyrexia [Recovered/Resolved]
  - Neutrophil count decreased [Recovered/Resolved]
  - Hypoalbuminaemia [Recovered/Resolved]
  - Hypoalbuminaemia [Recovered/Resolved]
  - Platelet count decreased [Recovered/Resolved]
  - Pyrexia [Recovered/Resolved]
  - Abdominal pain [Recovered/Resolved]
  - Aspartate aminotransferase increased [Recovered/Resolved]
  - Platelet count decreased [Recovered/Resolved]
  - Pyrexia [Recovered/Resolved]
  - Pyrexia [Recovered/Resolved]
  - Vomiting [Recovered/Resolved]

NARRATIVE: CASE EVENT DATE: 20170313
